FAERS Safety Report 9070542 (Version 1)
Quarter: 2013Q1

REPORT INFORMATION
  Report Type: Spontaneous
  Country: FR (occurrence: FR)
  Receive Date: 20130215
  Receipt Date: 20130215
  Transmission Date: 20140127
  Serious: Yes (Other)
  Sender: FDA-Public Use
  Company Number: FR-JNJFOC-20130204131

PATIENT
  Sex: Male

DRUGS (4)
  1. INTELENCE [Suspect]
     Indication: HIV INFECTION
     Route: 048
  2. MOPRAL [Suspect]
     Indication: PRODUCT USED FOR UNKNOWN INDICATION
     Route: 048
     Dates: start: 201206
  3. ISENTRESS [Concomitant]
     Indication: HIV INFECTION
     Dosage: IN DEC-2012, THE DOSE OF RALTEGRAVIR WAS NOT CHANGED
     Route: 048
  4. CELSENTRI [Concomitant]
     Indication: HIV INFECTION
     Route: 065

REACTIONS (3)
  - Antiviral drug level above therapeutic [Unknown]
  - Diarrhoea [Not Recovered/Not Resolved]
  - Neuropathy peripheral [Not Recovered/Not Resolved]
